FAERS Safety Report 6567746-0 (Version None)
Quarter: 2010Q1

REPORT INFORMATION
  Report Type: 
  Country: None (occurrence: None)
  Receive Date: 20100203
  Receipt Date: 20100125
  Transmission Date: 20100710
  Serious: Yes (Hospitalization)
  Sender: FDA-Public Use
  Company Number: FR-ASTRAZENECA-2010SE03636

PATIENT
  Age: 13140 Day
  Sex: Male

DRUGS (5)
  1. NEXIUM [Suspect]
     Route: 048
     Dates: start: 20081108, end: 20081127
  2. PARACETAMOL [Suspect]
     Route: 065
     Dates: start: 20081108, end: 20081112
  3. BIPROFENID [Suspect]
     Route: 048
     Dates: start: 20081108, end: 20081127
  4. ACTISKENAN [Suspect]
     Dosage: 10 MG THREE TO FOUR TIMES A DAY.
     Route: 048
     Dates: start: 20081208, end: 20081208
  5. SKENAN LP [Suspect]
     Indication: PAIN
     Route: 048
     Dates: start: 20081108, end: 20081212

REACTIONS (3)
  - CYTOLYTIC HEPATITIS [None]
  - HEPATITIS CHOLESTATIC [None]
  - HEPATOMEGALY [None]
